FAERS Safety Report 6810737-2 (Version None)
Quarter: 2010Q2

REPORT INFORMATION
  Report Type: 
  Country: None (occurrence: None)
  Receive Date: 20100630
  Receipt Date: 20070619
  Transmission Date: 20101027
  Serious: No
  Sender: FDA-Public Use
  Company Number: US-PFIZER INC-2007029054

PATIENT
  Sex: Female
  Weight: 51.7 kg

DRUGS (6)
  1. NICOTROL [Suspect]
     Indication: SMOKING CESSATION THERAPY
     Dates: start: 20020101, end: 20020101
  2. CHANTIX [Suspect]
     Indication: SMOKING CESSATION THERAPY
     Route: 048
     Dates: start: 20070414
  3. OXYCODONE HCL [Concomitant]
  4. PREMARIN [Concomitant]
  5. PROVIGIL [Concomitant]
  6. TRAZODONE HYDROCHLORIDE [Concomitant]

REACTIONS (8)
  - ABDOMINAL PAIN UPPER [None]
  - ABNORMAL DREAMS [None]
  - DYSGEUSIA [None]
  - NAUSEA [None]
  - OROPHARYNGEAL PAIN [None]
  - PAROSMIA [None]
  - URINE OUTPUT INCREASED [None]
  - VOMITING [None]
